FAERS Safety Report 10056320 (Version 1)
Quarter: 2014Q2

REPORT INFORMATION
  Report Type: Spontaneous
  Country: CA (occurrence: CA)
  Receive Date: 20140403
  Receipt Date: 20140403
  Transmission Date: 20141212
  Serious: Yes (Other)
  Sender: FDA-Public Use
  Company Number: CA-ALLERGAN-1406312US

PATIENT
  Age: 64 Year
  Sex: Female

DRUGS (5)
  1. BOTOX [Suspect]
     Indication: SKIN WRINKLING
     Dosage: UNK UNK, SINGLE
     Dates: start: 20140128, end: 20140128
  2. BOTOX [Suspect]
     Indication: SKIN WRINKLING
  3. JUVEDERM ULTRA PLUS [Suspect]
     Indication: SKIN WRINKLING
     Dosage: UNK
     Dates: start: 20140128, end: 20140128
  4. JUVEDERM ULTRA XC [Suspect]
     Indication: SKIN WRINKLING
     Dosage: UNK
     Dates: start: 20140128, end: 20140128
  5. JUVEDERM VOLUMA [Suspect]
     Indication: SKIN WRINKLING
     Dosage: UNK
     Dates: start: 201306, end: 201306

REACTIONS (3)
  - Swelling face [Recovered/Resolved]
  - Swelling face [Recovered/Resolved]
  - Off label use [Unknown]
